FAERS Safety Report 17268119 (Version 3)
Quarter: 2020Q1

REPORT INFORMATION
  Report Type: Spontaneous
  Country: US (occurrence: US)
  Receive Date: 20200114
  Receipt Date: 20200204
  Transmission Date: 20200409
  Serious: Yes (Death, Other)
  Sender: FDA-Public Use
  Company Number: US-AKORN PHARMACEUTICALS-2020AKN00011

PATIENT
  Age: 19 Year
  Sex: Male
  Weight: 56.69 kg

DRUGS (5)
  1. MYORISAN [Suspect]
     Active Substance: ISOTRETINOIN
     Dosage: 40 MG, 1X/DAY
     Route: 048
     Dates: start: 201811, end: 20181119
  2. ISOTRETINOIN. [Suspect]
     Active Substance: ISOTRETINOIN
     Dosage: 30 MG, 2X/DAY
     Dates: start: 20181015, end: 201811
  3. MYORISAN [Suspect]
     Active Substance: ISOTRETINOIN
     Dosage: 40 MG, 1X/DAY
     Route: 048
     Dates: start: 20181211, end: 20181217
  4. MYORISAN [Suspect]
     Active Substance: ISOTRETINOIN
     Dosage: 40 MG, 1X/DAY
     Route: 048
     Dates: start: 20190107, end: 201902
  5. MYORISAN [Suspect]
     Active Substance: ISOTRETINOIN
     Indication: ACNE
     Dosage: 40 MG, 1X/DAY
     Route: 048
     Dates: start: 201808, end: 20181015

REACTIONS (15)
  - Aspartate aminotransferase increased [Recovered/Resolved]
  - Lip dry [Unknown]
  - Dry skin [Unknown]
  - Back pain [Recovered/Resolved]
  - Completed suicide [Fatal]
  - Orchitis [Unknown]
  - Alanine aminotransferase increased [Recovered/Resolved]
  - Epistaxis [Recovered/Resolved]
  - Personality change [Not Recovered/Not Resolved]
  - Psychotic disorder [Not Recovered/Not Resolved]
  - Arthralgia [Recovered/Resolved]
  - Dermal cyst [Unknown]
  - Blood bilirubin increased [Recovered/Resolved]
  - Off label use [Recovered/Resolved]
  - Alopecia areata [Unknown]

NARRATIVE: CASE EVENT DATE: 201808
